FAERS Safety Report 14586900 (Version 1)
Quarter: 2018Q1

REPORT INFORMATION
  Report Type: Spontaneous
  Country: AR (occurrence: AR)
  Receive Date: 20180301
  Receipt Date: 20180301
  Transmission Date: 20180509
  Serious: Yes (Death, Hospitalization)
  Sender: FDA-Public Use
  Company Number: AR-PFIZER INC-2018084606

PATIENT
  Age: 73 Year
  Sex: Female

DRUGS (1)
  1. IBRANCE [Suspect]
     Active Substance: PALBOCICLIB
     Indication: BREAST CANCER METASTATIC
     Dosage: UNK
     Dates: start: 20170403

REACTIONS (8)
  - Vomiting [Unknown]
  - Oliguria [Unknown]
  - Renal disorder [Unknown]
  - Joint injury [Unknown]
  - Burning sensation [Unknown]
  - Death [Fatal]
  - Liver disorder [Unknown]
  - Fall [Unknown]

NARRATIVE: CASE EVENT DATE: 20180216
